FAERS Safety Report 9383808 (Version 1)
Quarter: 2013Q3

REPORT INFORMATION
  Report Type: Spontaneous
  Country: US (occurrence: US)
  Receive Date: 20130704
  Receipt Date: 20130704
  Transmission Date: 20140515
  Serious: Yes (Other)
  Sender: FDA-Public Use
  Company Number: US-BRISTOL-MYERS SQUIBB COMPANY-19044163

PATIENT
  Age: 26 Year
  Sex: Male

DRUGS (7)
  1. ABILIFY [Suspect]
     Indication: BIPOLAR I DISORDER
     Dates: start: 201111
  2. DEPAKOTE [Concomitant]
     Dates: start: 201109
  3. SEROQUEL [Concomitant]
     Dates: start: 201109
  4. HYDROXYZINE [Concomitant]
     Dates: start: 201109
  5. PRAZOSIN [Concomitant]
     Dates: start: 201109
  6. PALIPERIDONE [Concomitant]
  7. ZYPREXA [Concomitant]

REACTIONS (2)
  - Mania [Unknown]
  - Psychotic disorder [Unknown]
